FAERS Safety Report 16923952 (Version 1)
Quarter: 2019Q4

REPORT INFORMATION
  Report Type: Spontaneous
  Country: US (occurrence: US)
  Receive Date: 20190823
  Receipt Date: 20190823
  Transmission Date: 20200122
  Serious: No
  Sender: FDA-Public Use
  Company Number: None

PATIENT
  Sex: Male

DRUGS (1)
  1. REMICADE [Suspect]
     Active Substance: INFLIXIMAB
     Indication: CROHN^S DISEASE
     Dosage: ?          OTHER ROUTE:IV?
     Dates: start: 20190711

REACTIONS (4)
  - Arthralgia [None]
  - Gait disturbance [None]
  - Crohn^s disease [None]
  - Musculoskeletal pain [None]
